FAERS Safety Report 15508556 (Version 1)
Quarter: 2018Q4

REPORT INFORMATION
  Report Type: Spontaneous
  Country: US (occurrence: US)
  Receive Date: 20181016
  Receipt Date: 20181016
  Transmission Date: 20190205
  Serious: No
  Sender: FDA-Public Use
  Company Number: US-ENDO PHARMACEUTICALS INC-2018-040011

PATIENT
  Sex: Male

DRUGS (2)
  1. VANTAS [Suspect]
     Active Substance: HISTRELIN ACETATE
     Dosage: UNK UNK, UNKNOWN
     Route: 058
  2. VANTAS [Suspect]
     Active Substance: HISTRELIN ACETATE
     Indication: PRODUCT USED FOR UNKNOWN INDICATION
     Dosage: TWO IMPLANTS IN, ONE AFTER THE OTHER
     Route: 058
     Dates: start: 2015

REACTIONS (3)
  - Wrong technique in product usage process [Not Recovered/Not Resolved]
  - Hot flush [Not Recovered/Not Resolved]
  - Inappropriate schedule of product administration [Not Recovered/Not Resolved]

NARRATIVE: CASE EVENT DATE: 2015
